FAERS Safety Report 7958445-9 (Version None)
Quarter: 2011Q4

REPORT INFORMATION
  Report Type: 
  Country: None (occurrence: None)
  Receive Date: 20111205
  Receipt Date: 20111123
  Transmission Date: 20120403
  Serious: Yes (Hospitalization)
  Sender: FDA-Public Use
  Company Number: CA-ELI_LILLY_AND_COMPANY-CA201111007611

PATIENT
  Age: 62 Year
  Sex: Female

DRUGS (7)
  1. TRAZODONE HCL [Concomitant]
  2. NORTRIPTYLINE HCL [Concomitant]
  3. CALCIUM [Concomitant]
  4. FORTEO [Suspect]
     Indication: OSTEOPOROSIS
     Dosage: 20 UG, QD
     Route: 058
     Dates: start: 20110604
  5. VITAMIN D [Concomitant]
  6. ENTOCORT EC [Concomitant]
  7. BISOPROLOL FUMARATE [Concomitant]
     Indication: HYPERTENSION

REACTIONS (2)
  - DEVICE RELATED INFECTION [None]
  - ENDOCARDITIS [None]
